FAERS Safety Report 5075754-4 (Version None)
Quarter: 2006Q3

REPORT INFORMATION
  Report Type: 
  Country: None (occurrence: None)
  Receive Date: 20060804
  Receipt Date: 20060726
  Transmission Date: 20061208
  Serious: Yes (Life-Threatening, Other)
  Sender: FDA-Public Use
  Company Number: ENT 2006-0104

PATIENT
  Age: 76 Year
  Sex: Female

DRUGS (6)
  1. COMTESS (ENTACAPONE) [Suspect]
  2. ROBINUL-N [Suspect]
     Dosage: INTRAVENOUS
     Route: 042
     Dates: start: 20050509, end: 20060509
  3. SINEMET DEPOT [Concomitant]
  4. SINEMET [Concomitant]
  5. METFORMIN [Concomitant]
  6. TIENAM [Concomitant]

REACTIONS (3)
  - BRADYCARDIA [None]
  - CARDIAC ARREST [None]
  - DRUG INTERACTION [None]
